FAERS Safety Report 11454101 (Version 1)
Quarter: 2015Q3

REPORT INFORMATION
  Report Type: Spontaneous
  Country: US (occurrence: US)
  Receive Date: 20150831
  Receipt Date: 20150831
  Transmission Date: 20151125
  Serious: No
  Sender: FDA-Public Use
  Company Number: US-ELI_LILLY_AND_COMPANY-US201001006243

PATIENT
  Sex: Male

DRUGS (1)
  1. CYMBALTA [Suspect]
     Active Substance: DULOXETINE HYDROCHLORIDE
     Indication: NEURALGIA
     Dosage: 60 MG, UNK
     Route: 048
     Dates: start: 200910

REACTIONS (4)
  - Off label use [Unknown]
  - Rash pruritic [Unknown]
  - Rash papular [Unknown]
  - Headache [Unknown]

NARRATIVE: CASE EVENT DATE: 2009
